FAERS Safety Report 5346650-X (Version None)
Quarter: 2007Q2

REPORT INFORMATION
  Report Type: 
  Country: None (occurrence: None)
  Receive Date: 20070604
  Receipt Date: 20070522
  Transmission Date: 20071010
  Serious: Yes (Other)
  Sender: FDA-Public Use
  Company Number: GXKR2007FI04546

PATIENT
  Age: 59 Year
  Sex: Female

DRUGS (3)
  1. LINATIL COMP (NGX) (ENALAPRIL, HYDROCHLOROTHIAZIDE) UNKNOWN 20/12.5 MG [Suspect]
     Indication: HYPERTENSION
     Dosage: 1 DF, ORAL
     Route: 048
     Dates: start: 20070313, end: 20070313
  2. HYDREX (HYDROCHIOROTHIAZIDE) [Suspect]
     Indication: HYPERTENSION
     Dosage: ONCE/SINGLE
  3. SPESICOR (METOPROLOL TARTRATE) [Concomitant]

REACTIONS (2)
  - MALAISE [None]
  - SKIN DISCOLOURATION [None]
